FAERS Safety Report 9871027 (Version 2)
Quarter: 2014Q2

REPORT INFORMATION
  Report Type: Spontaneous
  Country: BR (occurrence: BR)
  Receive Date: 20140205
  Receipt Date: 20140401
  Transmission Date: 20141212
  Serious: Yes (Hospitalization)
  Sender: FDA-Public Use
  Company Number: BR-B.I. PHARMACEUTICALS,INC./RIDGEFIELD-2014-BI-04095BR

PATIENT
  Age: 80 Year
  Sex: Female
  Weight: 54 kg

DRUGS (13)
  1. PRADAXA [Suspect]
     Indication: COAGULOPATHY
     Dosage: 110 MG
     Route: 048
     Dates: start: 20140118, end: 20140119
  2. LASIX [Concomitant]
     Indication: DIURETIC THERAPY
     Route: 048
     Dates: start: 2003
  3. GLICLAZIDA [Concomitant]
     Indication: DIABETES MELLITUS
     Route: 048
     Dates: start: 2013
  4. PRELONE [Concomitant]
     Indication: RHEUMATOID ARTHRITIS
     Route: 048
     Dates: start: 2013
  5. LOSARTANA [Concomitant]
     Indication: BLOOD PRESSURE INCREASED
     Route: 048
     Dates: start: 2013
  6. JANUMET [Concomitant]
     Indication: DIABETES MELLITUS
     Route: 048
  7. PIRIDOXINA [Concomitant]
     Indication: ANAEMIA
     Route: 048
  8. FOLIC ACID [Concomitant]
     Indication: ANAEMIA
     Route: 065
  9. ALDACTONE [Concomitant]
     Indication: CARDIOVASCULAR DISORDER
     Route: 048
  10. NEOVITE [Concomitant]
     Indication: VITAMIN SUPPLEMENTATION
     Route: 048
  11. OMEPRAZOL [Concomitant]
     Indication: GASTRITIS
     Route: 048
  12. ACETYLSALICYLIC ACID [Concomitant]
     Route: 048
  13. SIMVASTATINA [Concomitant]
     Indication: BLOOD CHOLESTEROL INCREASED
     Route: 048

REACTIONS (2)
  - Infarction [Recovered/Resolved]
  - Fatigue [Not Recovered/Not Resolved]
